FAERS Safety Report 4737769-2 (Version None)
Quarter: 2005Q3

REPORT INFORMATION
  Report Type: 
  Country: None (occurrence: None)
  Receive Date: 20050803
  Receipt Date: 20050623
  Transmission Date: 20060218
  Serious: Yes (Hospitalization, Other)
  Sender: FDA-Public Use
  Company Number: 2005BI002021

PATIENT
  Age: 59 Year
  Sex: Female
  Weight: 73.4827 kg

DRUGS (20)
  1. AVONEX [Suspect]
     Indication: MULTIPLE SCLEROSIS
     Dosage: 30 UG;QW; IM
     Route: 030
     Dates: start: 19990801, end: 20030801
  2. AVONEX [Suspect]
     Indication: MULTIPLE SCLEROSIS
     Dosage: 30 UG;QW; IM
     Route: 030
     Dates: start: 20030825
  3. KEPPRA [Concomitant]
  4. MULTI-VITAMIN [Concomitant]
  5. ASCORBIC ACID [Concomitant]
  6. CALCIUM CITRATE [Concomitant]
  7. ZOCOR [Concomitant]
  8. ASPIRIN [Concomitant]
  9. BACLOFEN [Concomitant]
  10. CITRUCEL [Concomitant]
  11. LOTENSIN [Concomitant]
  12. HYDROCHLOROTHIAZIDE [Concomitant]
  13. CHLOR-TRIMETON [Concomitant]
  14. TYLENOL (CAPLET) [Concomitant]
  15. POTASSIUM CHLORIDE [Concomitant]
  16. PLAVIX [Concomitant]
  17. PROVIGIL [Concomitant]
  18. DILANTIN [Concomitant]
  19. TRILEPTAL [Concomitant]
  20. AMANTADINE [Concomitant]

REACTIONS (12)
  - BLADDER DISORDER [None]
  - CONTUSION [None]
  - CORONARY ARTERY DISEASE [None]
  - DISEASE PROGRESSION [None]
  - DRUG INTOLERANCE [None]
  - EPISTAXIS [None]
  - FATIGUE [None]
  - GAIT DISTURBANCE [None]
  - GRAND MAL CONVULSION [None]
  - MULTIPLE SCLEROSIS [None]
  - NERVOUSNESS [None]
  - SEXUAL DYSFUNCTION [None]
